FAERS Safety Report 6695806-2 (Version None)
Quarter: 2010Q2

REPORT INFORMATION
  Report Type: 
  Country: None (occurrence: None)
  Receive Date: 20100423
  Receipt Date: 20100423
  Transmission Date: 20101027
  Serious: Yes (Other)
  Sender: FDA-Public Use
  Company Number: None

PATIENT
  Sex: Female

DRUGS (1)
  1. SPIRIVA [Suspect]
     Indication: ASTHMA
     Dosage: INHALE THE CONTENTS OF 1 CAPSULE DAILY
     Route: 055

REACTIONS (3)
  - CAPSULE ISSUE [None]
  - DYSPNOEA [None]
  - PRODUCT QUALITY ISSUE [None]
